FAERS Safety Report 9826743 (Version 1)
Quarter: 2014Q1

REPORT INFORMATION
  Report Type: Spontaneous
  Country: US (occurrence: US)
  Receive Date: 20140117
  Receipt Date: 20140117
  Transmission Date: 20141002
  Serious: No
  Sender: FDA-Public Use
  Company Number: US-BIOGENIDEC-2014BI002068

PATIENT
  Age: 32 Year
  Sex: Female

DRUGS (13)
  1. TECFIDERA [Suspect]
     Indication: MULTIPLE SCLEROSIS
     Route: 048
     Dates: start: 201306
  2. VITAMIN C [Concomitant]
  3. HYDROCODONE BITARTRATE/AC [Concomitant]
  4. PROMETHAZINE HCL [Concomitant]
  5. MECLIZINE HCL [Concomitant]
  6. TOPAMAX [Concomitant]
  7. VITAMIN D2 [Concomitant]
  8. NORCO [Concomitant]
  9. RELAFEN [Concomitant]
  10. KLONOPIN [Concomitant]
  11. ZANAFLEX [Concomitant]
  12. OMEGA 3 [Concomitant]
  13. CYMBALTA [Concomitant]

REACTIONS (1)
  - Dizziness [Unknown]
